FAERS Safety Report 12465874 (Version 1)
Quarter: 2016Q2

REPORT INFORMATION
  Report Type: Spontaneous
  Country: US (occurrence: US)
  Receive Date: 20160614
  Receipt Date: 20160614
  Transmission Date: 20160815
  Serious: No
  Sender: FDA-Public Use
  Company Number: US-BAYER-2016-115673

PATIENT
  Age: 85 Year
  Sex: Male
  Weight: 91.61 kg

DRUGS (1)
  1. LOTRIMIN ULTRA ANTIFUNGAL [Suspect]
     Active Substance: BUTENAFINE HYDROCHLORIDE
     Indication: ONYCHOMYCOSIS
     Dosage: 1 DF, ONCE
     Route: 061
     Dates: start: 20160610

REACTIONS (1)
  - Off label use [None]

NARRATIVE: CASE EVENT DATE: 20160610
